FAERS Safety Report 24169201 (Version 1)
Quarter: 2024Q3

REPORT INFORMATION
  Report Type: Report from Study
  Country: FR (occurrence: FR)
  Receive Date: 20240802
  Receipt Date: 20240802
  Transmission Date: 20241017
  Serious: No
  Sender: SANDOZ
  Company Number: FR-SANDOZ-SDZ2024FR068905

PATIENT
  Age: 13 Year
  Sex: Male

DRUGS (1)
  1. OMNITROPE [Suspect]
     Active Substance: SOMATROPIN
     Indication: Product used for unknown indication
     Dosage: UNK
     Route: 065

REACTIONS (4)
  - Incorrect dose administered by device [Unknown]
  - Device occlusion [Unknown]
  - Wrong technique in device usage process [Unknown]
  - Device issue [Unknown]
